FAERS Safety Report 19056984 (Version 1)
Quarter: 2021Q1

REPORT INFORMATION
  Report Type: Report from Study
  Country: US (occurrence: US)
  Receive Date: 20210325
  Receipt Date: 20210325
  Transmission Date: 20210420
  Serious: Yes (Other)
  Sender: FDA-Public Use
  Company Number: US-GILEAD-2021-0518534

PATIENT
  Sex: Female

DRUGS (13)
  1. ATORVASTATIN [Concomitant]
     Active Substance: ATORVASTATIN
  2. AMLODIPINE [Concomitant]
     Active Substance: AMLODIPINE BESYLATE
  3. LAMOTRIGINE. [Concomitant]
     Active Substance: LAMOTRIGINE
  4. TRELEGY ELLIPTA [Concomitant]
     Active Substance: FLUTICASONE FUROATE\UMECLIDINIUM BROMIDE\VILANTEROL TRIFENATATE
  5. SILDENAFIL. [Concomitant]
     Active Substance: SILDENAFIL
  6. FUROSEMIDE. [Concomitant]
     Active Substance: FUROSEMIDE
  7. OPSUMIT [Concomitant]
     Active Substance: MACITENTAN
  8. AMBRISENTAN [Suspect]
     Active Substance: AMBRISENTAN
     Indication: PULMONARY HYPERTENSION
     Dosage: 10 MG, QD
     Route: 065
  9. AMITRIPTYLINE [Concomitant]
     Active Substance: AMITRIPTYLINE
  10. DULERA [Concomitant]
     Active Substance: FORMOTEROL FUMARATE DIHYDRATE\MOMETASONE FUROATE
  11. EMGALITY [Concomitant]
     Active Substance: GALCANEZUMAB-GNLM
  12. METOPROLOL. [Concomitant]
     Active Substance: METOPROLOL
  13. WARFARIN [Concomitant]
     Active Substance: WARFARIN

REACTIONS (6)
  - Oxygen saturation decreased [Not Recovered/Not Resolved]
  - Fatigue [Not Recovered/Not Resolved]
  - Drug ineffective [Not Recovered/Not Resolved]
  - Dyspnoea exertional [Not Recovered/Not Resolved]
  - Sluggishness [Not Recovered/Not Resolved]
  - Somnolence [Not Recovered/Not Resolved]
